FAERS Safety Report 23793744 (Version 1)
Quarter: 2024Q2

REPORT INFORMATION
  Report Type: Report from Study
  Country: US (occurrence: None)
  Receive Date: 20240429
  Receipt Date: 20240429
  Transmission Date: 20240716
  Serious: Yes (Other)
  Sender: FDA-Public Use
  Company Number: 2024A087949

PATIENT
  Sex: Female
  Weight: 91.6 kg

DRUGS (3)
  1. TAGRISSO [Suspect]
     Active Substance: OSIMERTINIB
     Indication: Lung neoplasm malignant
     Route: 048
     Dates: start: 20240223
  2. ELIQUIS [Concomitant]
     Active Substance: APIXABAN
  3. MARIJUANA GUMMIES [Concomitant]

REACTIONS (2)
  - Thrombosis [Unknown]
  - Sinusitis [Unknown]
